FAERS Safety Report 7595094-9 (Version None)
Quarter: 2011Q3

REPORT INFORMATION
  Report Type: 
  Country: None (occurrence: None)
  Receive Date: 20110707
  Receipt Date: 20110705
  Transmission Date: 20111222
  Serious: Yes (Other)
  Sender: FDA-Public Use
  Company Number: US-PFIZER INC-2011150618

PATIENT
  Sex: Male
  Weight: 86.168 kg

DRUGS (4)
  1. CHANTIX [Suspect]
     Dosage: UNK
     Route: 048
     Dates: start: 20110705
  2. CHANTIX [Suspect]
     Indication: SMOKING CESSATION THERAPY
     Dosage: 0.5 MG, DAILY
     Route: 048
     Dates: start: 20070101, end: 20070101
  3. KLONOPIN [Suspect]
     Indication: SMOKING CESSATION THERAPY
  4. KLONOPIN [Suspect]
     Indication: SLEEP DISORDER
     Dosage: UNK
     Route: 048
     Dates: start: 20080801

REACTIONS (4)
  - CHEST PAIN [None]
  - DRUG INEFFECTIVE [None]
  - ABDOMINAL DISTENSION [None]
  - PLEURITIC PAIN [None]
